FAERS Safety Report 12612265 (Version 3)
Quarter: 2016Q4

REPORT INFORMATION
  Report Type: Spontaneous
  Country: GR (occurrence: GR)
  Receive Date: 20160801
  Receipt Date: 20161010
  Transmission Date: 20170207
  Serious: Yes (Death, Other)
  Sender: FDA-Public Use
  Company Number: PHHY2016GR105003

PATIENT
  Age: 71 Year
  Sex: Male
  Weight: 65 kg

DRUGS (4)
  1. LASIX [Concomitant]
     Active Substance: FUROSEMIDE
     Indication: HYPERTENSION
     Dosage: 0.5 DF, QD
     Route: 065
  2. T4 [Concomitant]
     Active Substance: LEVOTHYROXINE
     Indication: HYPOTHYROIDISM
     Route: 065
  3. PREDNISOLONE. [Concomitant]
     Active Substance: PREDNISOLONE
     Indication: PRODUCT USED FOR UNKNOWN INDICATION
     Route: 065
  4. TOVANOR BREEZHALER [Suspect]
     Active Substance: GLYCOPYRROLATE
     Indication: CHRONIC OBSTRUCTIVE PULMONARY DISEASE
     Dosage: UNK
     Route: 055
     Dates: start: 20151012, end: 201602

REACTIONS (3)
  - Lung neoplasm malignant [Fatal]
  - Cardiac arrest [Fatal]
  - Respiratory tract infection [Unknown]

NARRATIVE: CASE EVENT DATE: 201512
